FAERS Safety Report 4324373-3 (Version None)
Quarter: 2004Q1

REPORT INFORMATION
  Report Type: 
  Country: None (occurrence: None)
  Receive Date: 20040323
  Receipt Date: 20040316
  Transmission Date: 20041129
  Serious: Yes (Other)
  Sender: FDA-Public Use
  Company Number: 2004-03-1180

PATIENT
  Age: 4 Month

DRUGS (2)
  1. INTRON A [Suspect]
  2. REBETOL [Suspect]

REACTIONS (2)
  - EPILEPSY [None]
  - TRANSMISSION OF DRUG VIA SEMEN [None]
